FAERS Safety Report 5917740-5 (Version None)
Quarter: 2008Q4

REPORT INFORMATION
  Report Type: 
  Country: None (occurrence: None)
  Receive Date: 20081009
  Receipt Date: 20080924
  Transmission Date: 20090506
  Serious: Yes (Hospitalization)
  Sender: FDA-Public Use
  Company Number: JPI-P-004756

PATIENT
  Age: 16 Year
  Sex: Male

DRUGS (6)
  1. XYREM [Suspect]
     Indication: NARCOLEPSY
     Dosage: 2.25 GM, ONCE OR TWICE DAILY UP TO 9 GRAMS DAILY, ORAL, UCI, 1 IN 1 D, ORAL
     Route: 048
     Dates: start: 20080905, end: 20080905
  2. XYREM [Suspect]
     Indication: NARCOLEPSY
     Dosage: 2.25 GM, ONCE OR TWICE DAILY UP TO 9 GRAMS DAILY, ORAL, UCI, 1 IN 1 D, ORAL
     Route: 048
     Dates: start: 20070809
  3. LETROZOLE [Suspect]
     Indication: GROWTH RETARDATION
     Dosage: 2.5 MG, ORAL
     Route: 048
     Dates: start: 20070904
  4. METHYLPHENIDATE HCL [Concomitant]
  5. MODAFINIL [Concomitant]
  6. SOMATROPIN (SOMATROPIN) [Concomitant]

REACTIONS (4)
  - BLOOD CREATININE INCREASED [None]
  - INCORRECT DOSE ADMINISTERED [None]
  - LOSS OF CONSCIOUSNESS [None]
  - MEDICATION ERROR [None]
